FAERS Safety Report 10333204 (Version 1)
Quarter: 2014Q3

REPORT INFORMATION
  Report Type: Spontaneous
  Country: US (occurrence: US)
  Receive Date: 20140722
  Receipt Date: 20140722
  Transmission Date: 20150326
  Serious: No
  Sender: FDA-Public Use
  Company Number: US-GILEAD-2014-0108867

PATIENT
  Sex: Male

DRUGS (3)
  1. SOVALDI [Suspect]
     Active Substance: SOFOSBUVIR
     Indication: HEPATITIS C
     Dosage: 400 MG, QD
     Route: 048
  2. PEGASYS [Concomitant]
     Active Substance: PEGINTERFERON ALFA-2A
     Indication: HEPATITIS C
  3. RIBAVIRIN. [Concomitant]
     Active Substance: RIBAVIRIN
     Indication: HEPATITIS C

REACTIONS (5)
  - Decreased appetite [Not Recovered/Not Resolved]
  - Influenza like illness [Not Recovered/Not Resolved]
  - Rash pruritic [Not Recovered/Not Resolved]
  - Weight decreased [Not Recovered/Not Resolved]
  - Rash [Not Recovered/Not Resolved]

NARRATIVE: CASE EVENT DATE: 20140425
